FAERS Safety Report 8428789-5 (Version None)
Quarter: 2012Q2

REPORT INFORMATION
  Report Type: 
  Country: None (occurrence: None)
  Receive Date: 20120606
  Receipt Date: 20120529
  Transmission Date: 20120825
  Serious: Yes (Disabling, Other)
  Sender: FDA-Public Use
  Company Number: AUR-APL-2012-02427

PATIENT
  Age: 50 Year
  Sex: Male
  Weight: 96 kg

DRUGS (9)
  1. AMLODIPINE [Concomitant]
  2. BENDROFLUMETHIAZIDE (BENDROFLUMETHIAZIDE) [Concomitant]
  3. SERETIDE (SERETIDE) [Concomitant]
  4. ATORVASTATIN [Concomitant]
  5. MIRTAZAPINE [Suspect]
     Indication: PRODUCT USED FOR UNKNOWN INDICATION
     Dosage: 15 MG
     Dates: start: 20120501
  6. LOSARTAN POTASSIUM [Concomitant]
  7. MONTELUKAST [Concomitant]
  8. PROCTOSEDYL OTHER (PROCTOSEDYL) [Concomitant]
  9. SODIUIM CROMOGLICATE (CROMOGLICATE SODIUM) [Concomitant]

REACTIONS (6)
  - ARTHRALGIA [None]
  - MYALGIA [None]
  - PAIN [None]
  - BLOOD TRIGLYCERIDES INCREASED [None]
  - ALANINE AMINOTRANSFERASE INCREASED [None]
  - NECK PAIN [None]
